APPROVED DRUG PRODUCT: ANAGRELIDE HYDROCHLORIDE
Active Ingredient: ANAGRELIDE HYDROCHLORIDE
Strength: EQ 1MG BASE
Dosage Form/Route: CAPSULE;ORAL
Application: A077613 | Product #002
Applicant: RISING PHARMA HOLDINGS INC
Approved: Jun 27, 2006 | RLD: No | RS: No | Type: DISCN